FAERS Safety Report 4385058-0 (Version None)
Quarter: 2004Q2

REPORT INFORMATION
  Report Type: 
  Country: None (occurrence: None)
  Receive Date: 20040625
  Receipt Date: 20040618
  Transmission Date: 20050107
  Serious: Yes (Other)
  Sender: FDA-Public Use
  Company Number: DE-GLAXOSMITHKLINE-D0044032A

PATIENT
  Sex: Male

DRUGS (1)
  1. ELOBACT [Suspect]
     Dosage: 250MG TWICE PER DAY
     Route: 048
     Dates: start: 20040616

REACTIONS (4)
  - DIZZINESS [None]
  - HALLUCINATION [None]
  - HEADACHE [None]
  - HYPERTENSION [None]
